FAERS Safety Report 19578952 (Version 1)
Quarter: 2021Q3

REPORT INFORMATION
  Report Type: Spontaneous
  Country: CA (occurrence: CA)
  Receive Date: 20210719
  Receipt Date: 20210719
  Transmission Date: 20211014
  Serious: Yes (Life-Threatening, Other)
  Sender: FDA-Public Use
  Company Number: CA-GLAXOSMITHKLINE-CA2020AMR169750

PATIENT
  Sex: Female
  Weight: 80 kg

DRUGS (1)
  1. BENLYSTA [Suspect]
     Active Substance: BELIMUMAB
     Indication: SYSTEMIC LUPUS ERYTHEMATOSUS
     Dosage: 800 MG, Z,  EVERY 4 WEEKS
     Route: 042
     Dates: start: 201803

REACTIONS (4)
  - Pain [Unknown]
  - Circumstance or information capable of leading to medication error [Unknown]
  - Suicidal ideation [Unknown]
  - Joint injury [Unknown]
